FAERS Safety Report 4451661-2 (Version None)
Quarter: 2004Q3

REPORT INFORMATION
  Report Type: 
  Country: None (occurrence: None)
  Receive Date: 20040915
  Receipt Date: 20040901
  Transmission Date: 20050211
  Serious: Yes (Hospitalization)
  Sender: FDA-Public Use
  Company Number: 2004021426

PATIENT
  Sex: Male

DRUGS (5)
  1. LUSTRAL (SERTRALINE) [Suspect]
     Indication: DEPRESSION SUICIDAL
     Dosage: 150 MG (150 MG, 1 IN 1 D), ORAL
     Route: 048
     Dates: start: 20030921
  2. ANTIDEPRESSANTS (ANTIDEPRESSANTS) [Concomitant]
  3. AMITRIPTYLINE HCL [Concomitant]
  4. ALPRAZOLAM [Concomitant]
  5. CHLORPROMAZINE [Concomitant]

REACTIONS (6)
  - DRUG WITHDRAWAL SYNDROME [None]
  - HYPOTONIA [None]
  - MATERNAL DRUGS AFFECTING FOETUS [None]
  - RESTLESSNESS [None]
  - SHOCK [None]
  - TREMOR NEONATAL [None]
